FAERS Safety Report 16667622 (Version 1)
Quarter: 2019Q3

REPORT INFORMATION
  Report Type: Spontaneous
  Country: FR (occurrence: FR)
  Receive Date: 20190805
  Receipt Date: 20190805
  Transmission Date: 20191004
  Serious: Yes (Other)
  Sender: FDA-Public Use
  Company Number: FR-TEVA-2019-FR-1088357

PATIENT
  Age: 56 Year
  Sex: Female
  Weight: 48 kg

DRUGS (2)
  1. ESTREVA [Suspect]
     Active Substance: ESTRADIOL
     Indication: HORMONE THERAPY
     Dosage: COMPRIME SECABLE
     Route: 048
     Dates: start: 200409
  2. ANDROCUR 50 MG [Suspect]
     Active Substance: CYPROTERONE ACETATE
     Indication: ALOPECIA
     Dosage: COMPRIME SECABLE
     Route: 048
     Dates: start: 200409, end: 20181109

REACTIONS (1)
  - Meningioma [Recovering/Resolving]

NARRATIVE: CASE EVENT DATE: 20181107
